FAERS Safety Report 8395880-1 (Version None)
Quarter: 2012Q2

REPORT INFORMATION
  Report Type: 
  Country: None (occurrence: None)
  Receive Date: 20120530
  Receipt Date: 20120522
  Transmission Date: 20120825
  Serious: Yes (Other)
  Sender: FDA-Public Use
  Company Number: CA-UCBSA-056788

PATIENT
  Age: 70 Year
  Sex: Female
  Weight: 90 kg

DRUGS (2)
  1. PREDNISONE TAB [Concomitant]
     Indication: SINUSITIS
     Dosage: 30 MG
  2. CIMZIA [Suspect]
     Indication: RHEUMATOID ARTHRITIS
     Dosage: NO OF INTAKES: 3
     Route: 058
     Dates: start: 20120326

REACTIONS (1)
  - HERPES ZOSTER [None]
